FAERS Safety Report 7811070-2 (Version None)
Quarter: 2011Q4

REPORT INFORMATION
  Report Type: 
  Country: None (occurrence: None)
  Receive Date: 20111013
  Receipt Date: 20110930
  Transmission Date: 20120403
  Serious: Yes (Hospitalization)
  Sender: FDA-Public Use
  Company Number: US-BAYER-2011-082111

PATIENT
  Age: 52 Year
  Sex: Female
  Weight: 62.132 kg

DRUGS (5)
  1. YAZ [Suspect]
     Indication: MENORRHAGIA
     Dosage: UNK
     Dates: start: 20060701, end: 20090701
  2. MULTI-VITAMINS [Concomitant]
  3. ANTIBIOTICS [Concomitant]
     Route: 042
  4. YAZ [Suspect]
     Indication: DYSMENORRHOEA
  5. LEVAQUIN [Concomitant]
     Indication: PNEUMONIA
     Dosage: UNK
     Dates: start: 20090601

REACTIONS (2)
  - INJURY [None]
  - PULMONARY EMBOLISM [None]
